FAERS Safety Report 5574714-4 (Version None)
Quarter: 2007Q4

REPORT INFORMATION
  Report Type: 
  Country: None (occurrence: None)
  Receive Date: 20071221
  Receipt Date: 20071221
  Transmission Date: 20080405
  Serious: Yes (Life-Threatening, Hospitalization)
  Sender: FDA-Public Use
  Company Number: None

PATIENT
  Sex: Female
  Weight: 72.5755 kg

DRUGS (1)
  1. HYDROCORT 5MG GLADES PHARMACEUTICALS [Suspect]
     Indication: ADDISON'S DISEASE
     Dosage: 15MG. IN AM 71/2 IN PM TWICE DAILY PO
     Route: 048
     Dates: start: 20070301, end: 20070910

REACTIONS (6)
  - ABASIA [None]
  - DYSPNOEA [None]
  - GAIT DISTURBANCE [None]
  - HEART RATE INCREASED [None]
  - MALAISE [None]
  - PHARMACEUTICAL PRODUCT COMPLAINT [None]
